FAERS Safety Report 7755305-3 (Version None)
Quarter: 2011Q3

REPORT INFORMATION
  Report Type: 
  Country: None (occurrence: None)
  Receive Date: 20110914
  Receipt Date: 20110901
  Transmission Date: 20111222
  Serious: Yes (Other)
  Sender: FDA-Public Use
  Company Number: DEP_00513_2011

PATIENT
  Age: 57 Year
  Sex: Female

DRUGS (4)
  1. GLIMEPIRIDE [Concomitant]
  2. ROSIGLITAZONE [Concomitant]
  3. GABAPENTIN [Suspect]
     Indication: DYSAESTHESIA
     Dosage: 600 MG (300 MG 1X)
  4. ACARBOSE [Concomitant]

REACTIONS (9)
  - VOMITING [None]
  - TOXICITY TO VARIOUS AGENTS [None]
  - BLOOD SODIUM INCREASED [None]
  - DIZZINESS [None]
  - HAEMODIALYSIS [None]
  - LETHARGY [None]
  - BLOOD GLUCOSE INCREASED [None]
  - ALTERED STATE OF CONSCIOUSNESS [None]
  - BLOOD PRESSURE SYSTOLIC INCREASED [None]
